FAERS Safety Report 19736817 (Version 1)
Quarter: 2021Q3

REPORT INFORMATION
  Report Type: Spontaneous
  Country: US (occurrence: US)
  Receive Date: 20210823
  Receipt Date: 20210823
  Transmission Date: 20211014
  Serious: Yes (Other)
  Sender: FDA-Public Use
  Company Number: US-BAUSCH-BL-2021-027614

PATIENT
  Age: 74 Year
  Sex: Male
  Weight: 72.64 kg

DRUGS (2)
  1. MESALAMINE. [Suspect]
     Active Substance: MESALAMINE
     Indication: COLITIS ULCERATIVE
     Dosage: APPROXIMATELY 1 YEAR AGO
     Route: 048
     Dates: start: 2020
  2. MESALAMINE. [Suspect]
     Active Substance: MESALAMINE
     Dosage: APPROXIMATELY 1 YEAR AGO
     Route: 048
     Dates: start: 2020

REACTIONS (5)
  - Therapeutic product effect decreased [Unknown]
  - Product storage error [Unknown]
  - Inappropriate schedule of product administration [Unknown]
  - Product dose omission in error [Unknown]
  - Haematochezia [Unknown]

NARRATIVE: CASE EVENT DATE: 202107
